FAERS Safety Report 9948009 (Version 1)
Quarter: 2014Q1

REPORT INFORMATION
  Report Type: Report from Study
  Country: US (occurrence: US)
  Receive Date: 20140303
  Receipt Date: 20140303
  Transmission Date: 20141002
  Serious: Yes (Hospitalization)
  Sender: FDA-Public Use
  Company Number: US-ABBVIE-13P-163-1057596-00

PATIENT
  Age: 54 Year
  Sex: Female
  Weight: 88.53 kg

DRUGS (4)
  1. HUMIRA [Suspect]
     Indication: PSORIASIS
     Dates: end: 201205
  2. HUMIRA [Suspect]
     Dates: start: 201212
  3. TRAMADOL [Concomitant]
     Indication: PRODUCT USED FOR UNKNOWN INDICATION
  4. ASA [Concomitant]
     Indication: PRODUCT USED FOR UNKNOWN INDICATION

REACTIONS (5)
  - Ankle fracture [Recovered/Resolved]
  - Fall [Recovered/Resolved]
  - Bronchitis [Recovered/Resolved]
  - Osteoporosis [Not Recovered/Not Resolved]
  - Skin wound [Unknown]
